FAERS Safety Report 25316771 (Version 1)
Quarter: 2025Q2

REPORT INFORMATION
  Report Type: Spontaneous
  Country: RU (occurrence: RU)
  Receive Date: 20250515
  Receipt Date: 20250515
  Transmission Date: 20250717
  Serious: Yes (Other)
  Sender: ROCHE
  Company Number: RU-ROCHE-10000277530

PATIENT
  Age: 36 Year

DRUGS (3)
  1. VEMURAFENIB [Suspect]
     Active Substance: VEMURAFENIB
     Indication: Malignant melanoma
     Route: 042
     Dates: start: 202401
  2. COBIMETINIB [Suspect]
     Active Substance: COBIMETINIB
     Indication: Malignant melanoma
     Route: 042
     Dates: start: 202401
  3. NIVOLUMAB [Concomitant]
     Active Substance: NIVOLUMAB
     Route: 042
     Dates: start: 202306

REACTIONS (7)
  - Cerebrovascular disorder [Unknown]
  - Alopecia areata [Unknown]
  - Onychomadesis [Unknown]
  - Onycholysis [Unknown]
  - Gliosis [Unknown]
  - Cerebral disorder [Unknown]
  - Pulmonary fibrosis [Unknown]
